FAERS Safety Report 20458361 (Version 2)
Quarter: 2022Q1

REPORT INFORMATION
  Report Type: Spontaneous
  Country: US (occurrence: US)
  Receive Date: 20220211
  Receipt Date: 20220331
  Transmission Date: 20220423
  Serious: Yes (Other)
  Sender: FDA-Public Use
  Company Number: US-CELLTRION INC.-2022US001263

PATIENT

DRUGS (1)
  1. INFLECTRA [Suspect]
     Active Substance: INFLIXIMAB-DYYB
     Indication: Sarcoidosis
     Dosage: 1400 MILLIGRAM, EVERY 4 WEEKS (28 DAYS)
     Route: 042

REACTIONS (5)
  - Sarcoidosis [Unknown]
  - Pain [Unknown]
  - Insurance issue [Unknown]
  - Treatment delayed [Unknown]
  - Off label use [Unknown]
